FAERS Safety Report 6929875-9 (Version None)
Quarter: 2010Q3

REPORT INFORMATION
  Report Type: 
  Country: None (occurrence: None)
  Receive Date: 20100813
  Receipt Date: 20100729
  Transmission Date: 20110219
  Serious: Yes (Other)
  Sender: FDA-Public Use
  Company Number: 2010AP001584

PATIENT
  Age: 77 Year
  Sex: Female

DRUGS (8)
  1. CITALOPRAM HYDROBROMIDE [Suspect]
     Indication: DEPRESSION
     Dates: start: 20100619, end: 20100621
  2. OXYTETRACYCLINE [Suspect]
     Indication: EYE INFECTION
     Dosage: TAB
     Dates: start: 20100603, end: 20100622
  3. DILTIAZEM HCL [Concomitant]
  4. ENALAPRIL MALEATE [Concomitant]
  5. INDAPAMIDE [Concomitant]
  6. MOXONIDINE (MOXONIDINE) [Concomitant]
  7. TERAZOSIN HCL [Concomitant]
  8. WARFARIN SODIUM [Concomitant]

REACTIONS (5)
  - ABDOMINAL PAIN UPPER [None]
  - ASTHENIA [None]
  - FATIGUE [None]
  - HEADACHE [None]
  - NAUSEA [None]
